FAERS Safety Report 16847159 (Version 2)
Quarter: 2019Q3

REPORT INFORMATION
  Report Type: Spontaneous
  Country: US (occurrence: US)
  Receive Date: 20190924
  Receipt Date: 20190924
  Transmission Date: 20191005
  Serious: Yes (Other)
  Sender: FDA-Public Use
  Company Number: US-PFIZER INC-2019396250

PATIENT
  Age: 72 Year
  Sex: Female
  Weight: 51.71 kg

DRUGS (3)
  1. ROBITUSSIN COUGH AND CHEST CONGESTION DM MAX [Suspect]
     Active Substance: DEXTROMETHORPHAN HYDROBROMIDE\GUAIFENESIN
     Indication: NASOPHARYNGITIS
     Dosage: 3 SWALLOWS WHEN SHE FIRST GETS UP IN THE MORNING AND 2 SWALLOWS EVERY 4 HOURS, BUT NOT AT NIGHT
     Dates: start: 201908
  2. NORVASC [Concomitant]
     Active Substance: AMLODIPINE BESYLATE
     Indication: HYPERTENSION
     Dosage: 10 MG, DAILY (5 MG IN THE MORNING AND 5 MG AT NIGHT USING SPLITTER)
     Dates: start: 1995
  3. ROBITUSSIN COUGH AND CHEST CONGESTION DM MAX [Suspect]
     Active Substance: DEXTROMETHORPHAN HYDROBROMIDE\GUAIFENESIN
     Indication: COUGH
     Dosage: UNK

REACTIONS (1)
  - Pneumonia [Unknown]
